FAERS Safety Report 7795808-9 (Version None)
Quarter: 2011Q3

REPORT INFORMATION
  Report Type: 
  Country: None (occurrence: None)
  Receive Date: 20110930
  Receipt Date: 20110922
  Transmission Date: 20111222
  Serious: Yes (Hospitalization)
  Sender: FDA-Public Use
  Company Number: WAES 1102USA03260

PATIENT
  Age: 82 Year
  Sex: Female
  Weight: 70.3075 kg

DRUGS (8)
  1. CALCIUM (UNSPECIFIED) [Concomitant]
  2. ASPIRIN [Concomitant]
  3. SYNTHROID [Concomitant]
  4. FOSAMAX [Suspect]
     Indication: PROPHYLAXIS
     Dosage: 70 MG/WKY/PO
     Route: 048
     Dates: start: 19951224
  5. ZETIA [Concomitant]
  6. VEGF TRAP-EYE UNK [Suspect]
     Indication: AGE-RELATED MACULAR DEGENERATION
     Dosage: 2 MG/4QW ; 2 MG/PRN ; 2 MG/PRN
     Dates: start: 20080721, end: 20090722
  7. VEGF TRAP-EYE UNK [Suspect]
     Indication: AGE-RELATED MACULAR DEGENERATION
     Dosage: 2 MG/4QW ; 2 MG/PRN ; 2 MG/PRN
     Dates: start: 20100628
  8. VEGF TRAP-EYE UNK [Suspect]
     Indication: AGE-RELATED MACULAR DEGENERATION
     Dosage: 2 MG/4QW ; 2 MG/PRN ; 2 MG/PRN
     Dates: start: 20090914, end: 20100524

REACTIONS (5)
  - ANGINA PECTORIS [None]
  - ATELECTASIS [None]
  - ANAEMIA [None]
  - LEUKAEMIA [None]
  - CONDITION AGGRAVATED [None]
